FAERS Safety Report 16102549 (Version 1)
Quarter: 2019Q1

REPORT INFORMATION
  Report Type: Report from Study
  Country: DE (occurrence: DE)
  Receive Date: 20190321
  Receipt Date: 20190321
  Transmission Date: 20190418
  Serious: Yes (Hospitalization, Other)
  Sender: FDA-Public Use
  Company Number: DE-BIOGEN-2012BI056118

PATIENT
  Age: 53 Year
  Sex: Female

DRUGS (7)
  1. NOVAMINSULFON [Concomitant]
     Active Substance: METAMIZOLE
     Indication: PAIN
     Dosage: 1-1-1-1
     Route: 065
  2. MACROGOL HEXAL PLUS [Concomitant]
     Indication: PRODUCT USED FOR UNKNOWN INDICATION
     Dosage: 1-0-0-0
     Route: 065
  3. TYSABRI [Suspect]
     Active Substance: NATALIZUMAB
     Indication: RELAPSING-REMITTING MULTIPLE SCLEROSIS
     Dosage: INFUSED OVER 1 HOUR
     Route: 042
     Dates: start: 20120125, end: 20120830
  4. LEVODOPA [Concomitant]
     Active Substance: LEVODOPA
     Indication: TREMOR
     Route: 065
     Dates: start: 20120107
  5. L-THYROX [Concomitant]
     Active Substance: LEVOTHYROXINE SODIUM
     Indication: HYPOTHYROIDISM
     Dosage: 1-0-0-0
     Route: 065
     Dates: start: 20080101
  6. VALORON [Concomitant]
     Indication: PAIN
     Dosage: 1-0-1-0
     Route: 065
  7. RAMIPRIL. [Concomitant]
     Active Substance: RAMIPRIL
     Indication: PRODUCT USED FOR UNKNOWN INDICATION
     Dosage: 1-0-0-0
     Route: 065

REACTIONS (5)
  - Post procedural fistula [Recovered/Resolved]
  - Humerus fracture [Recovered/Resolved]
  - Osteomyelitis acute [Recovered/Resolved]
  - Postoperative wound infection [Recovered/Resolved]
  - Abscess [Recovered/Resolved]

NARRATIVE: CASE EVENT DATE: 20120515
